FAERS Safety Report 7753670-4 (Version None)
Quarter: 2011Q3

REPORT INFORMATION
  Report Type: 
  Country: None (occurrence: None)
  Receive Date: 20110915
  Receipt Date: 20110915
  Transmission Date: 20111222
  Serious: Yes (Life-Threatening)
  Sender: FDA-Public Use
  Company Number: None

PATIENT
  Sex: Female
  Weight: 950.72 kg

DRUGS (1)
  1. CARBAMAZEPINE [Suspect]
     Indication: NEURALGIA
     Dosage: 200MG
     Route: 048
     Dates: start: 20110415, end: 20110603

REACTIONS (1)
  - BLOOD COUNT ABNORMAL [None]
